FAERS Safety Report 17093291 (Version 1)
Quarter: 2019Q4

REPORT INFORMATION
  Report Type: Spontaneous
  Country: HR (occurrence: HR)
  Receive Date: 20191129
  Receipt Date: 20191129
  Transmission Date: 20200122
  Serious: Yes (Other)
  Sender: FDA-Public Use
  Company Number: HR-TEVA-2019-HR-1143485

PATIENT
  Sex: Male

DRUGS (4)
  1. AMLODIPIN [Suspect]
     Active Substance: AMLODIPINE BESYLATE
     Dosage: 60 MG
     Route: 048
     Dates: start: 20190830, end: 20190830
  2. PERINDOPRIL [Suspect]
     Active Substance: PERINDOPRIL
     Dosage: 800 MG
     Route: 048
     Dates: start: 20190830, end: 20190830
  3. ALKOHOL [Suspect]
     Active Substance: ALCOHOL
     Route: 048
     Dates: start: 20190830, end: 20190830
  4. DIAZEPAM. [Suspect]
     Active Substance: DIAZEPAM
     Dosage: 1500 MG
     Route: 048
     Dates: start: 20190830, end: 20190830

REACTIONS (3)
  - Intentional overdose [Unknown]
  - Suicide attempt [Unknown]
  - Loss of consciousness [Unknown]

NARRATIVE: CASE EVENT DATE: 20190830
